FAERS Safety Report 4761476-3 (Version None)
Quarter: 2005Q3

REPORT INFORMATION
  Report Type: 
  Country: None (occurrence: None)
  Receive Date: 20050902
  Receipt Date: 20050902
  Transmission Date: 20060218
  Serious: Yes (Hospitalization, Other)
  Sender: FDA-Public Use
  Company Number: None

PATIENT
  Sex: Female
  Weight: 62.3 kg

DRUGS (2)
  1. CARBOPLATIN [Suspect]
     Indication: SMALL CELL LUNG CANCER STAGE UNSPECIFIED
     Dosage: SEE IMAGE
     Dates: start: 20050817, end: 20050817
  2. ETOPOSIDE [Suspect]
     Dosage: SEE IMAGE
     Dates: start: 20050817, end: 20050819

REACTIONS (2)
  - CHILLS [None]
  - FEBRILE NEUTROPENIA [None]
